FAERS Safety Report 18398299 (Version 1)
Quarter: 2020Q4

REPORT INFORMATION
  Report Type: Spontaneous
  Country: US (occurrence: US)
  Receive Date: 20201019
  Receipt Date: 20201019
  Transmission Date: 20210114
  Serious: Yes (Hospitalization)
  Sender: FDA-Public Use
  Company Number: None

PATIENT
  Sex: Male

DRUGS (4)
  1. VALACYCLOVIR [Concomitant]
     Active Substance: VALACYCLOVIR HYDROCHLORIDE
  2. PROCHLORPER [Concomitant]
  3. PREVYMIS [Suspect]
     Active Substance: LETERMOVIR
     Indication: BONE MARROW TRANSPLANT
     Route: 048
  4. URSODIOL. [Concomitant]
     Active Substance: URSODIOL

REACTIONS (2)
  - Hospitalisation [None]
  - Therapy interrupted [None]
